FAERS Safety Report 6609133-2 (Version None)
Quarter: 2010Q1

REPORT INFORMATION
  Report Type: 
  Country: None (occurrence: None)
  Receive Date: 20100226
  Receipt Date: 20100226
  Transmission Date: 20100710
  Serious: Yes (Hospitalization)
  Sender: FDA-Public Use
  Company Number: None

PATIENT
  Age: 59 Year
  Sex: Female
  Weight: 97.0698 kg

DRUGS (1)
  1. FERAHEME [Suspect]
     Indication: IRON DEFICIENCY ANAEMIA
     Dosage: 510MG ONCE IV
     Route: 042
     Dates: start: 20100218, end: 20100218

REACTIONS (3)
  - BACK PAIN [None]
  - DRUG HYPERSENSITIVITY [None]
  - GROIN PAIN [None]
